FAERS Safety Report 20701332 (Version 13)
Quarter: 2025Q1

REPORT INFORMATION
  Report Type: Report from Study
  Country: US (occurrence: US)
  Receive Date: 20220412
  Receipt Date: 20250331
  Transmission Date: 20250409
  Serious: Yes (Hospitalization, Other)
  Sender: TAKEDA
  Company Number: US-TAKEDA-2022TUS024174

PATIENT
  Age: 42 Year
  Sex: Female
  Weight: 61 kg

DRUGS (37)
  1. HUMAN IMMUNOGLOBULIN G [Suspect]
     Active Substance: HUMAN IMMUNOGLOBULIN G
     Indication: Primary immunodeficiency syndrome
     Dosage: 13 GRAM, 1/WEEK
  2. HUMAN IMMUNOGLOBULIN G [Suspect]
     Active Substance: HUMAN IMMUNOGLOBULIN G
     Indication: Selective IgA immunodeficiency
     Dosage: 13 GRAM, Q2WEEKS
     Dates: start: 20201208
  3. HUMAN IMMUNOGLOBULIN G [Suspect]
     Active Substance: HUMAN IMMUNOGLOBULIN G
     Dosage: 15 GRAM, Q2WEEKS
  4. ACETAMINOPHEN [Concomitant]
     Active Substance: ACETAMINOPHEN
  5. VALPROIC ACID [Concomitant]
     Active Substance: VALPROIC ACID
  6. SODIUM CHLORIDE [Concomitant]
     Active Substance: SODIUM CHLORIDE
  7. XOPENEX [Concomitant]
     Active Substance: LEVALBUTEROL HYDROCHLORIDE
  8. ONFI [Concomitant]
     Active Substance: CLOBAZAM
  9. PROLIA [Concomitant]
     Active Substance: DENOSUMAB
  10. POTASSIUM CHLORIDE [Concomitant]
     Active Substance: POTASSIUM CHLORIDE
  11. BACTRIM [Concomitant]
     Active Substance: SULFAMETHOXAZOLE\TRIMETHOPRIM
  12. PANTOPRAZOLE SODIUM [Concomitant]
     Active Substance: PANTOPRAZOLE SODIUM
  13. GUAIFENESIN [Concomitant]
     Active Substance: GUAIFENESIN
  14. AZELASTINE HYDROCHLORIDE [Concomitant]
     Active Substance: AZELASTINE HYDROCHLORIDE
  15. KETOCONAZOLE [Concomitant]
     Active Substance: KETOCONAZOLE
  16. MUPIROCIN [Concomitant]
     Active Substance: MUPIROCIN
  17. CALCIUM\CHOLECALCIFEROL [Concomitant]
     Active Substance: CALCIUM\CHOLECALCIFEROL
  18. MUCINEX FAST-MAX COLD AND FLU [Concomitant]
     Active Substance: ACETAMINOPHEN\DEXTROMETHORPHAN HYDROBROMIDE\GUAIFENESIN\PHENYLEPHRINE HYDROCHLORIDE
     Indication: Nasopharyngitis
  19. MUCINEX FAST-MAX COLD AND FLU [Concomitant]
     Active Substance: ACETAMINOPHEN\DEXTROMETHORPHAN HYDROBROMIDE\GUAIFENESIN\PHENYLEPHRINE HYDROCHLORIDE
     Indication: Influenza
  20. LORAZEPAM [Concomitant]
     Active Substance: LORAZEPAM
  21. FLUTICASONE PROPIONATE [Concomitant]
     Active Substance: FLUTICASONE PROPIONATE
  22. MIRALAX [Concomitant]
     Active Substance: POLYETHYLENE GLYCOL 3350
  23. TOBRAMYCIN [Concomitant]
     Active Substance: TOBRAMYCIN
  24. LEVETIRACETAM [Concomitant]
     Active Substance: LEVETIRACETAM
  25. NYSTATIN [Concomitant]
     Active Substance: NYSTATIN
  26. OXYGEN [Concomitant]
     Active Substance: OXYGEN
  27. Lmx [Concomitant]
  28. DIPHENHYDRAMINE HYDROCHLORIDE [Concomitant]
     Active Substance: DIPHENHYDRAMINE HYDROCHLORIDE
  29. Gluco [Concomitant]
  30. MONTELUKAST SODIUM [Concomitant]
     Active Substance: MONTELUKAST SODIUM
  31. SYNTHROID [Concomitant]
     Active Substance: LEVOTHYROXINE SODIUM
  32. TRIAMCINOLONE ACETONIDE [Concomitant]
     Active Substance: TRIAMCINOLONE ACETONIDE
  33. PERIDEX [Concomitant]
     Active Substance: CHLORHEXIDINE GLUCONATE
  34. DIPHENHYDRAMINE [Concomitant]
     Active Substance: DIPHENHYDRAMINE
  35. EPINEPHRINE [Concomitant]
     Active Substance: EPINEPHRINE
  36. FAMOTIDINE [Concomitant]
     Active Substance: FAMOTIDINE
  37. LAMOTRIGINE [Concomitant]
     Active Substance: LAMOTRIGINE

REACTIONS (9)
  - White blood cell count increased [Unknown]
  - Pneumonia bacterial [Unknown]
  - Pneumonia staphylococcal [Unknown]
  - Pneumonia [Unknown]
  - COVID-19 pneumonia [Unknown]
  - Injection site discharge [Unknown]
  - Staphylococcal infection [Unknown]
  - Infection [Unknown]
  - Staphylococcus test positive [Unknown]

NARRATIVE: CASE EVENT DATE: 20250103
